FAERS Safety Report 17157906 (Version 5)
Quarter: 2020Q1

REPORT INFORMATION
  Report Type: Spontaneous
  Country: US (occurrence: US)
  Receive Date: 20191216
  Receipt Date: 20200229
  Transmission Date: 20200409
  Serious: No
  Sender: FDA-Public Use
  Company Number: US-DSJP-DSU-2019-147664

PATIENT

DRUGS (2)
  1. TURALIO [Suspect]
     Active Substance: PEXIDARTINIB HYDROCHLORIDE
     Indication: SYNOVITIS
     Dosage: 400 MG, BID
     Route: 048
     Dates: start: 20191113
  2. TURALIO [Suspect]
     Active Substance: PEXIDARTINIB HYDROCHLORIDE
     Dosage: 200 MG, BID
     Route: 048

REACTIONS (10)
  - Periorbital swelling [Unknown]
  - Diarrhoea [Unknown]
  - Hair colour changes [Unknown]
  - Eyelash discolouration [Unknown]
  - Fatigue [Unknown]
  - Off label use [Not Recovered/Not Resolved]
  - Pruritus [Recovering/Resolving]
  - Eye swelling [Unknown]
  - Anaemia [Unknown]
  - Urticaria [Unknown]

NARRATIVE: CASE EVENT DATE: 2019
